FAERS Safety Report 15827843 (Version 2)
Quarter: 2020Q3

REPORT INFORMATION
  Report Type: Report from Study
  Country: None (occurrence: DE)
  Receive Date: 20190115
  Receipt Date: 20200713
  Transmission Date: 20201102
  Serious: Yes (Other)
  Sender: FDA-Public Use
  Company Number: DE-ABBVIE-19P-062-2620813-00

PATIENT
  Age: 60 Year
  Sex: Male
  Weight: 82 kg

DRUGS (5)
  1. OBINUTUZUMAB. [Concomitant]
     Active Substance: OBINUTUZUMAB
     Indication: CHRONIC LYMPHOCYTIC LEUKAEMIA
     Dates: start: 20180305
  2. MAGNESIUM DIASPORAL [Concomitant]
     Active Substance: MAGNESIUM
     Indication: PRODUCT USED FOR UNKNOWN INDICATION
     Route: 048
  3. VENETOCLAX. [Suspect]
     Active Substance: VENETOCLAX
     Indication: CHRONIC LYMPHOCYTIC LEUKAEMIA
     Route: 048
     Dates: start: 20180228
  4. ACICLOVIR [Concomitant]
     Active Substance: ACYCLOVIR
     Indication: PRODUCT USED FOR UNKNOWN INDICATION
     Route: 048
  5. ALLOPURIUOL [Concomitant]
     Indication: PRODUCT USED FOR UNKNOWN INDICATION
     Route: 048
     Dates: start: 20180227, end: 20190108

REACTIONS (1)
  - Optic ischaemic neuropathy [Recovered/Resolved with Sequelae]

NARRATIVE: CASE EVENT DATE: 20181222
